FAERS Safety Report 12897888 (Version 2)
Quarter: 2016Q4

REPORT INFORMATION
  Report Type: Report from Study
  Country: US (occurrence: US)
  Receive Date: 20161031
  Receipt Date: 20161116
  Transmission Date: 20170207
  Serious: Yes (Hospitalization)
  Sender: FDA-Public Use
  Company Number: US-BAYER-2016-194202

PATIENT
  Age: 52 Year
  Sex: Female

DRUGS (3)
  1. NEXAVAR [Suspect]
     Active Substance: SORAFENIB
     Indication: HEPATOCELLULAR CARCINOMA
     Dosage: 200 MG, BID
     Route: 048
     Dates: start: 20160930
  2. NEXAVAR [Suspect]
     Active Substance: SORAFENIB
     Indication: HEPATOCELLULAR CARCINOMA
     Dosage: 200 MG, QD
     Route: 048
     Dates: start: 20161101
  3. NEXAVAR [Suspect]
     Active Substance: SORAFENIB
     Indication: HEPATOCELLULAR CARCINOMA
     Dosage: 400 MG, BID
     Route: 048
     Dates: start: 20160927, end: 20161031

REACTIONS (16)
  - Constipation [None]
  - Abdominal pain [None]
  - Chromaturia [None]
  - Vomiting [Recovered/Resolved]
  - Weight decreased [None]
  - Migraine [None]
  - Blister [None]
  - Erythema [None]
  - Nausea [None]
  - Decreased appetite [None]
  - Blood pressure fluctuation [None]
  - Blood glucose decreased [None]
  - Blood potassium abnormal [Recovering/Resolving]
  - Headache [None]
  - Back pain [None]
  - Tenderness [None]

NARRATIVE: CASE EVENT DATE: 2016
